FAERS Safety Report 9894653 (Version 3)
Quarter: 2014Q1

REPORT INFORMATION
  Report Type: Report from Study
  Country: GB (occurrence: GB)
  Receive Date: 20140213
  Receipt Date: 20140218
  Transmission Date: 20141002
  Serious: Yes (Other)
  Sender: FDA-Public Use
  Company Number: GB-009507513-1210GBR012253

PATIENT
  Age: 72 Year
  Sex: Female
  Weight: 65.5 kg

DRUGS (3)
  1. ALENDRONATE SODIUM [Suspect]
     Indication: OSTEOPOROSIS
     Dosage: UNK, QW
     Route: 048
     Dates: start: 20120514
  2. MK-0000 (281) [Suspect]
     Dosage: UNK
  3. CALCICHEW D3 FORTE [Suspect]
     Indication: OSTEOPOROSIS
     Dosage: UNK, QD
     Dates: start: 20120514

REACTIONS (2)
  - Rib fracture [Recovered/Resolved]
  - Fall [Recovered/Resolved]
